FAERS Safety Report 6304000-6 (Version None)
Quarter: 2009Q3

REPORT INFORMATION
  Report Type: 
  Country: None (occurrence: None)
  Receive Date: 20090810
  Receipt Date: 20090810
  Transmission Date: 20100115
  Serious: Yes (Hospitalization)
  Sender: FDA-Public Use
  Company Number: None

PATIENT
  Age: 33 Year
  Sex: Female
  Weight: 52 kg

DRUGS (3)
  1. MEDROXYPROGESTERONE ACETATE INJ [Suspect]
     Indication: CONTRACEPTION
     Dosage: 150 MG Q 3 MONTHS IM
     Route: 030
     Dates: start: 20090629, end: 20090629
  2. FERROUS SULFATE TAB [Concomitant]
  3. VITAMIN TAB [Concomitant]

REACTIONS (8)
  - ANAPHYLACTIC REACTION [None]
  - DIARRHOEA [None]
  - DYSPNOEA [None]
  - HEADACHE [None]
  - NAUSEA [None]
  - NECK PAIN [None]
  - PRURITUS [None]
  - VOMITING [None]
